FAERS Safety Report 20249213 (Version 1)
Quarter: 2021Q4

REPORT INFORMATION
  Report Type: Spontaneous
  Country: US (occurrence: None)
  Receive Date: 20211228
  Receipt Date: 20211228
  Transmission Date: 20220303
  Serious: No
  Sender: FDA-Public Use
  Company Number: None

PATIENT
  Age: 51 Year
  Sex: Female

DRUGS (1)
  1. HUMIRA [Suspect]
     Active Substance: ADALIMUMAB
     Indication: Thyroiditis
     Dosage: OTHER FREQUENCY : 40 MG/0.4ML;??INJECT 1 PEN (40 MG) UNDER THE SKIN (SUBCUTANEOUS INJECTION) EVERY 1
     Route: 058
     Dates: start: 20210622

REACTIONS (2)
  - Surgery [None]
  - Therapy interrupted [None]

NARRATIVE: CASE EVENT DATE: 20211107
